FAERS Safety Report 9265182 (Version 9)
Quarter: 2014Q1

REPORT INFORMATION
  Report Type: Report from Study
  Country: DE (occurrence: DE)
  Receive Date: 20130501
  Receipt Date: 20140222
  Transmission Date: 20141002
  Serious: Yes (Hospitalization)
  Sender: FDA-Public Use
  Company Number: DE-ROCHE-1217866

PATIENT
  Age: 42 Year
  Sex: Male
  Weight: 115.8 kg

DRUGS (6)
  1. VISMODEGIB [Suspect]
     Indication: BASAL CELL CARCINOMA
     Dosage: DATE OF LAST DOSE PRIOR TO SAE: 22/APR/2013. THERAPY WITH VISMODEGIB WAS INTERRUPTED ON THE SAME DAY
     Route: 048
     Dates: start: 20130320, end: 20130422
  2. VISMODEGIB [Suspect]
     Dosage: THERAPY WAS REINTRODUCED ON 29/APR/2013. LATER, THERAPY WAS DISCONTINUED.
     Route: 048
     Dates: start: 20130429
  3. SERTRALINE [Concomitant]
     Indication: DEPRESSION
     Route: 065
     Dates: start: 201101
  4. ACETYLSALICYLIC ACID [Concomitant]
     Indication: CEREBROVASCULAR ACCIDENT PROPHYLAXIS
     Route: 065
     Dates: start: 20130628
  5. TERZOLIN [Concomitant]
     Dosage: 2 APPLICATIONS PER WEEK
     Route: 065
     Dates: start: 20130909
  6. TERZOLIN [Concomitant]
     Dosage: 2 APPLICATIONS PER DAY
     Route: 065
     Dates: start: 20130806

REACTIONS (1)
  - Abscess [Recovered/Resolved]
